FAERS Safety Report 13875613 (Version 2)
Quarter: 2017Q4

REPORT INFORMATION
  Report Type: Report from Study
  Country: None (occurrence: AU)
  Receive Date: 20170817
  Receipt Date: 20171101
  Transmission Date: 20180320
  Serious: Yes (Hospitalization)
  Sender: FDA-Public Use
  Company Number: AU-ABBVIE-17K-008-2072304-00

PATIENT
  Sex: Male

DRUGS (2)
  1. HUMIRA [Suspect]
     Active Substance: ADALIMUMAB
     Indication: CROHN^S DISEASE
     Route: 058
  2. HUMIRA [Suspect]
     Active Substance: ADALIMUMAB
     Route: 058
     Dates: start: 2017

REACTIONS (4)
  - Decreased appetite [Unknown]
  - Intestinal obstruction [Recovering/Resolving]
  - Volvulus [Unknown]
  - Abdominal adhesions [Recovering/Resolving]
